FAERS Safety Report 6127284-6 (Version None)
Quarter: 2009Q1

REPORT INFORMATION
  Report Type: 
  Country: None (occurrence: None)
  Receive Date: 20090319
  Receipt Date: 20090305
  Transmission Date: 20090719
  Serious: Yes (Hospitalization)
  Sender: FDA-Public Use
  Company Number: 02100-JPN-07-0006

PATIENT
  Age: 58 Year
  Sex: Male

DRUGS (7)
  1. PLAVIX [Suspect]
     Indication: CEREBRAL INFARCTION
     Dosage: 75 MG, DAILY DOSE, ORAL : 75 MG, DAILY DOSE; ORAL
     Route: 048
     Dates: start: 20061023, end: 20061223
  2. PLAVIX [Suspect]
     Indication: CEREBRAL INFARCTION
     Dosage: 75 MG, DAILY DOSE, ORAL : 75 MG, DAILY DOSE; ORAL
     Route: 048
     Dates: start: 20061231
  3. ASPIRIN [Concomitant]
  4. ATORVASTATIN CALCIUM [Concomitant]
  5. GLIMEPIRIDE [Concomitant]
  6. METFORMIN HCL [Concomitant]
  7. IRBESARTAN [Concomitant]

REACTIONS (1)
  - CATARACT [None]
